FAERS Safety Report 8351684-7 (Version None)
Quarter: 2012Q2

REPORT INFORMATION
  Report Type: 
  Country: None (occurrence: None)
  Receive Date: 20120511
  Receipt Date: 20120502
  Transmission Date: 20120825
  Serious: No
  Sender: FDA-Public Use
  Company Number: US-BIOGENIDEC-2012BI015590

PATIENT
  Sex: Female

DRUGS (4)
  1. TYSABRI [Suspect]
     Route: 042
     Dates: start: 20090722
  2. AVONEX [Concomitant]
     Route: 030
     Dates: start: 20090701
  3. AVONEX [Concomitant]
     Indication: MULTIPLE SCLEROSIS
     Route: 030
     Dates: start: 20081114
  4. TYSABRI [Suspect]
     Indication: MULTIPLE SCLEROSIS
     Route: 042
     Dates: start: 20090701

REACTIONS (1)
  - MUSCULOSKELETAL DISORDER [None]
